FAERS Safety Report 18196152 (Version 2)
Quarter: 2020Q3

REPORT INFORMATION
  Report Type: Report from Study
  Country: US (occurrence: US)
  Receive Date: 20200826
  Receipt Date: 20200923
  Transmission Date: 20201103
  Serious: Yes (Other)
  Sender: FDA-Public Use
  Company Number: US-ALNYLAM PHARMACEUTICALS, INC.-ALN-2020-001467

PATIENT

DRUGS (1)
  1. GIVLAARI [Suspect]
     Active Substance: GIVOSIRAN SODIUM
     Indication: PORPHYRIA ACUTE
     Dosage: 220 MILLIGRAM, MONTHLY
     Route: 058
     Dates: start: 20200207

REACTIONS (3)
  - Seizure [Unknown]
  - Herpes zoster [Unknown]
  - Porphyria acute [Unknown]

NARRATIVE: CASE EVENT DATE: 2020
